APPROVED DRUG PRODUCT: MOEXIPRIL HYDROCHLORIDE AND HYDROCHLOROTHIAZIDE
Active Ingredient: HYDROCHLOROTHIAZIDE; MOEXIPRIL HYDROCHLORIDE
Strength: 25MG;15MG
Dosage Form/Route: TABLET;ORAL
Application: A076980 | Product #002
Applicant: TEVA PHARMACEUTICALS USA INC
Approved: Mar 7, 2007 | RLD: No | RS: Yes | Type: RX